FAERS Safety Report 7358428-6 (Version None)
Quarter: 2011Q1

REPORT INFORMATION
  Report Type: 
  Country: None (occurrence: None)
  Receive Date: 20110314
  Receipt Date: 20110314
  Transmission Date: 20110831
  Serious: No
  Sender: FDA-Public Use
  Company Number: None

PATIENT
  Sex: Male

DRUGS (1)
  1. LYRICA [Suspect]
     Indication: PAIN
     Dosage: LYRICA 75MG DAILY BY MOUTH
     Dates: start: 20110128, end: 20110131

REACTIONS (3)
  - RASH MACULAR [None]
  - PRURITUS [None]
  - HYPOAESTHESIA [None]
